FAERS Safety Report 15612334 (Version 1)
Quarter: 2018Q4

REPORT INFORMATION
  Report Type: Spontaneous
  Country: US (occurrence: US)
  Receive Date: 20181107
  Receipt Date: 20181107
  Transmission Date: 20190205
  Serious: No
  Sender: FDA-Public Use
  Company Number: None

PATIENT
  Age: 93 Year
  Sex: Male

DRUGS (13)
  1. GABAPENTIN. [Concomitant]
     Active Substance: GABAPENTIN
  2. XGEVA [Concomitant]
     Active Substance: DENOSUMAB
  3. LOSARTAN. [Concomitant]
     Active Substance: LOSARTAN
  4. BICALUTAMIDE. [Concomitant]
     Active Substance: BICALUTAMIDE
  5. CALCIUM + D3 [Concomitant]
     Active Substance: CALCIUM\CHOLECALCIFEROL
  6. JANUVIA [Concomitant]
     Active Substance: SITAGLIPTIN PHOSPHATE
  7. LOSARTAN. [Concomitant]
     Active Substance: LOSARTAN
  8. ZYTIGA [Suspect]
     Active Substance: ABIRATERONE ACETATE
     Indication: PROSTATE CANCER
     Route: 048
     Dates: start: 20180816
  9. METOPROLOL. [Concomitant]
     Active Substance: METOPROLOL
  10. BICALUTAMIDE. [Concomitant]
     Active Substance: BICALUTAMIDE
  11. VITAMIN C [Concomitant]
     Active Substance: ASCORBIC ACID
  12. TAMSULOSIN [Concomitant]
     Active Substance: TAMSULOSIN
  13. POTASSIUM HYDROCHLOROTHIAZIDE [Concomitant]

REACTIONS (1)
  - Blood potassium decreased [None]
